FAERS Safety Report 5375326-8 (Version None)
Quarter: 2007Q2

REPORT INFORMATION
  Report Type: 
  Country: None (occurrence: None)
  Receive Date: 20070629
  Receipt Date: 20070618
  Transmission Date: 20071010
  Serious: Yes (Death, Other)
  Sender: FDA-Public Use
  Company Number: JP-PFIZER INC-2006131849

PATIENT
  Sex: Female
  Weight: 60 kg

DRUGS (6)
  1. ZYVOX [Suspect]
     Indication: SEPSIS
     Route: 042
     Dates: start: 20050228, end: 20050302
  2. MEROPEN [Concomitant]
     Route: 042
  3. CIPROFLOXACIN [Concomitant]
     Route: 042
     Dates: start: 20050228
  4. CEFTRIAXONE [Concomitant]
     Route: 042
     Dates: start: 20050228, end: 20050228
  5. GABEXATE MESILATE [Concomitant]
     Route: 042
     Dates: start: 20050228, end: 20060301
  6. SOL-MELCORT [Concomitant]
     Route: 042
     Dates: start: 20050301, end: 20050302

REACTIONS (4)
  - DEATH [None]
  - HEPATIC FAILURE [None]
  - RENAL FAILURE ACUTE [None]
  - RHABDOMYOLYSIS [None]
